FAERS Safety Report 25502326 (Version 1)
Quarter: 2025Q3

REPORT INFORMATION
  Report Type: Spontaneous
  Country: JP (occurrence: JP)
  Receive Date: 20250702
  Receipt Date: 20250702
  Transmission Date: 20251020
  Serious: Yes (Hospitalization)
  Sender: ROCHE
  Company Number: JP-ROCHE-10000323980

PATIENT
  Age: 31 Year
  Sex: Female

DRUGS (14)
  1. ENTRECTINIB [Suspect]
     Active Substance: ENTRECTINIB
     Indication: Breast cancer
     Route: 065
  2. DOXORUBICIN [Concomitant]
     Active Substance: DOXORUBICIN
     Indication: Breast cancer
  3. CYCLOPHOSPHAMIDE [Concomitant]
     Active Substance: CYCLOPHOSPHAMIDE
     Indication: Breast cancer
  4. DOCETAXEL [Concomitant]
     Active Substance: DOCETAXEL
     Indication: Breast cancer
  5. PACLITAXEL [Concomitant]
     Active Substance: PACLITAXEL
  6. BEVACIZUMAB [Concomitant]
     Active Substance: BEVACIZUMAB
  7. ERIBULIN [Concomitant]
     Active Substance: ERIBULIN
  8. LOXOPROFEN [Concomitant]
     Active Substance: LOXOPROFEN
     Route: 048
  9. FUROSEMIDE [Concomitant]
     Active Substance: FUROSEMIDE
     Route: 042
  10. SPIRONOLACTONE [Concomitant]
     Active Substance: SPIRONOLACTONE
     Route: 048
  11. TOLVAPTAN [Concomitant]
     Active Substance: TOLVAPTAN
  12. COLCHICINE [Concomitant]
     Active Substance: COLCHICINE
  13. DEXAMETHASONE [Concomitant]
     Active Substance: DEXAMETHASONE
     Route: 048
  14. LAROTRECTINIB [Concomitant]
     Active Substance: LAROTRECTINIB

REACTIONS (2)
  - Pericarditis [Unknown]
  - Cardiac tamponade [Unknown]
